FAERS Safety Report 4400746-5 (Version None)
Quarter: 2004Q3

REPORT INFORMATION
  Report Type: 
  Country: None (occurrence: None)
  Receive Date: 20040714
  Receipt Date: 20040708
  Transmission Date: 20050211
  Serious: Yes (Hospitalization, Congenital Anomaly)
  Sender: FDA-Public Use
  Company Number: RB-804-2004

PATIENT
  Age: 1 Day
  Sex: Male

DRUGS (1)
  1. BUPRENORPHINE HYDROCHLORIDE [Suspect]
     Indication: DRUG DETOXIFICATION
     Dosage: 4 MG QD/3 MG QD/2 MG QD, TPC
     Route: 061
     Dates: start: 19990101

REACTIONS (7)
  - AGITATION NEONATAL [None]
  - CONGENITAL ANOMALY [None]
  - DRUG EXPOSURE DURING PREGNANCY [None]
  - JAUNDICE NEONATAL [None]
  - PLAGIOCEPHALY [None]
  - STRABISMUS [None]
  - TREMOR NEONATAL [None]
